FAERS Safety Report 9046440 (Version 1)
Quarter: 2013Q1

REPORT INFORMATION
  Report Type: Report from Study
  Country: US (occurrence: US)
  Receive Date: 20130130
  Receipt Date: 20130130
  Transmission Date: 20140127
  Serious: No
  Sender: FDA-Public Use
  Company Number: US-ABBOTT-12P-163-0959554-00

PATIENT
  Age: 33 Year
  Sex: Female

DRUGS (11)
  1. HUMIRA [Suspect]
     Indication: COLITIS ULCERATIVE
     Dates: start: 20120607
  2. LIALDA [Concomitant]
     Indication: COLITIS ULCERATIVE
     Dosage: 4 DAILY IN THE AM
  3. PROPRANOLOL [Concomitant]
     Indication: CARDIAC DISORDER
  4. NEURONTIN [Concomitant]
     Indication: NEUROPATHY PERIPHERAL
  5. LEXAPRO [Concomitant]
     Indication: NERVOUSNESS
     Dosage: 10MG DAILY
  6. VITAMIN D 2000 [Concomitant]
     Indication: VITAMIN SUPPLEMENTATION
     Dosage: DAILY, PRN
  7. B12 [Concomitant]
     Indication: VITAMIN SUPPLEMENTATION
  8. PROBIOTIC [Concomitant]
     Indication: PROBIOTIC THERAPY
  9. PREDNISONE [Concomitant]
     Indication: PRODUCT USED FOR UNKNOWN INDICATION
     Dosage: 10MG DAILY
     Dates: end: 20120720
  10. PREDNISONE [Concomitant]
     Dosage: 7.5MG DAILY TAPERING DOSE
     Dates: start: 20120721
  11. PRILOSEC [Concomitant]
     Indication: GASTRIC DISORDER
     Dosage: IN AM

REACTIONS (7)
  - Injection site bruising [Recovering/Resolving]
  - Injection site erythema [Recovered/Resolved]
  - Injection site discolouration [Recovered/Resolved]
  - Injection site erythema [Not Recovered/Not Resolved]
  - Injection site pruritus [Not Recovered/Not Resolved]
  - Injection site urticaria [Not Recovered/Not Resolved]
  - Injection site urticaria [Not Recovered/Not Resolved]
